FAERS Safety Report 23789557 (Version 1)
Quarter: 2024Q2

REPORT INFORMATION
  Report Type: Spontaneous
  Country: US (occurrence: None)
  Receive Date: 20240426
  Receipt Date: 20240426
  Transmission Date: 20240715
  Serious: No
  Sender: FDA-Public Use
  Company Number: None

PATIENT
  Age: 26 Year
  Sex: Female

DRUGS (1)
  1. BENLYSTA [Suspect]
     Active Substance: BELIMUMAB
     Indication: Systemic lupus erythematosus
     Dosage: FREQUENCY : WEEKLY;?

REACTIONS (7)
  - Suicidal ideation [None]
  - Paranoia [None]
  - Anxiety [None]
  - Depression [None]
  - Insomnia [None]
  - Psychotic disorder [None]
  - Hypoaesthesia [None]

NARRATIVE: CASE EVENT DATE: 20240412
